FAERS Safety Report 7996641-5 (Version None)
Quarter: 2011Q4

REPORT INFORMATION
  Report Type: 
  Country: None (occurrence: None)
  Receive Date: 20111221
  Receipt Date: 20111209
  Transmission Date: 20120403
  Serious: Yes (Other)
  Sender: FDA-Public Use
  Company Number: US-PAR PHARMACEUTICAL, INC-2011SCPR003490

PATIENT

DRUGS (15)
  1. SODIUM NITROPRUSSIDE [Concomitant]
     Indication: PRODUCT USED FOR UNKNOWN INDICATION
     Dosage: UNK, UNKNOWN
     Route: 065
  2. DEXAMETHASONE [Concomitant]
     Indication: LETHARGY
     Dosage: UNK, UNKNOWN
     Route: 065
  3. LISINOPRIL [Concomitant]
     Indication: PRODUCT USED FOR UNKNOWN INDICATION
     Dosage: UNK, UNKNOWN
     Route: 065
  4. DACLIZUMAB [Concomitant]
     Indication: PRODUCT USED FOR UNKNOWN INDICATION
     Dosage: UNK, UNKNOWN
     Route: 065
  5. BEVACIZUMAB [Concomitant]
     Dosage: 5 MG/KG, EVERY 2 WEEKS
     Route: 065
  6. NIFEDIPINE [Concomitant]
     Indication: PRODUCT USED FOR UNKNOWN INDICATION
     Dosage: UNK, UNKNOWN
     Route: 065
  7. BEVACIZUMAB [Concomitant]
     Dosage: 7.5 MG/KG, EVERY 2 WEEKS
     Route: 065
  8. BEVACIZUMAB [Concomitant]
     Dosage: 10 MG/KG, EVERY 2 WEEKS
     Route: 065
  9. TEMOZOLOMIDE [Concomitant]
     Indication: GLIOBLASTOMA
     Dosage: UNK, UNKNOWN
     Route: 065
  10. BEVACIZUMAB [Concomitant]
     Indication: GLIOBLASTOMA
     Dosage: 10 MG/KG, EVERY 2 WEEKS
  11. IMATINIB MESYLATE [Suspect]
     Indication: GLIOBLASTOMA
     Dosage: UNK, UNKNOWN
     Route: 065
  12. ETOPOSIDE [Concomitant]
     Indication: PRODUCT USED FOR UNKNOWN INDICATION
     Dosage: UNK, UNKNOWN
     Route: 065
  13. HYDROXYUREA [Suspect]
     Indication: GLIOBLASTOMA
     Dosage: UNK, UNKNOWN
     Route: 065
  14. DEXAMETHASONE [Concomitant]
     Indication: HEMIPARESIS
  15. DEXAMETHASONE [Concomitant]
     Indication: APHASIA

REACTIONS (3)
  - GLIOBLASTOMA [None]
  - DISEASE PROGRESSION [None]
  - THROMBOCYTOPENIA [None]
